FAERS Safety Report 24970189 (Version 1)
Quarter: 2025Q1

REPORT INFORMATION
  Report Type: Spontaneous
  Country: IN (occurrence: IN)
  Receive Date: 20250214
  Receipt Date: 20250214
  Transmission Date: 20250409
  Serious: Yes (Other)
  Sender: RANBAXY
  Company Number: IN-SUN PHARMACEUTICAL INDUSTRIES LTD-2025R1-493668

PATIENT
  Age: 40 Year
  Sex: Male

DRUGS (2)
  1. APIXABAN [Suspect]
     Active Substance: APIXABAN
     Indication: Anticoagulant therapy
     Route: 065
  2. FOLIC ACID [Suspect]
     Active Substance: FOLIC ACID
     Indication: Product used for unknown indication
     Route: 065

REACTIONS (3)
  - Deep vein thrombosis [Unknown]
  - Disease recurrence [Unknown]
  - Pulmonary embolism [Unknown]
